FAERS Safety Report 4806800-8 (Version None)
Quarter: 2005Q4

REPORT INFORMATION
  Report Type: 
  Country: None (occurrence: None)
  Receive Date: 20051019
  Receipt Date: 20051007
  Transmission Date: 20060501
  Serious: Yes (Death)
  Sender: FDA-Public Use
  Company Number: 2005139669

PATIENT
  Age: 47 Year
  Sex: Male

DRUGS (1)
  1. RELPAX [Suspect]
     Indication: MIGRAINE
     Dosage: ONE TABLET (1 WK),

REACTIONS (3)
  - AMNESIA [None]
  - FALL [None]
  - RUPTURED CEREBRAL ANEURYSM [None]
